FAERS Safety Report 6855896-0 (Version None)
Quarter: 2010Q2

REPORT INFORMATION
  Report Type: 
  Country: None (occurrence: None)
  Receive Date: 20100629
  Receipt Date: 20100316
  Transmission Date: 20101027
  Serious: No
  Sender: FDA-Public Use
  Company Number: US-WYE-H14188910

PATIENT
  Age: 53 Year
  Sex: Female
  Weight: 68.1 kg

DRUGS (4)
  1. PRISTIQ [Suspect]
     Indication: DEPRESSION
     Dosage: 50 MG 1X PER 2 DAY
     Dates: start: 20100309, end: 20100315
  2. VITAMIN D [Concomitant]
  3. LOVAZA [Concomitant]
  4. ESTRADIOL [Concomitant]

REACTIONS (9)
  - ABDOMINAL DISCOMFORT [None]
  - CHEST DISCOMFORT [None]
  - DIZZINESS [None]
  - EYE HAEMORRHAGE [None]
  - EYE PAIN [None]
  - HEADACHE [None]
  - INSOMNIA [None]
  - NAUSEA [None]
  - YAWNING [None]
